FAERS Safety Report 7335022-4 (Version None)
Quarter: 2011Q1

REPORT INFORMATION
  Report Type: 
  Country: None (occurrence: None)
  Receive Date: 20110307
  Receipt Date: 20110223
  Transmission Date: 20110831
  Serious: No
  Sender: FDA-Public Use
  Company Number: US-JNJFOC-20110207840

PATIENT
  Sex: Female
  Weight: 136.08 kg

DRUGS (16)
  1. ELAVIL [Concomitant]
     Indication: DEPRESSION
     Route: 048
  2. LEXAPRO [Concomitant]
     Indication: DEPRESSION
     Route: 048
  3. CRESTOR [Concomitant]
     Indication: BLOOD CHOLESTEROL
     Route: 048
  4. PROTONIX [Concomitant]
     Indication: ILL-DEFINED DISORDER
     Route: 048
  5. HALDOL [Concomitant]
     Indication: SCHIZOPHRENIA
     Route: 048
  6. LORTAB [Concomitant]
     Indication: PAIN
     Route: 048
  7. VALIUM [Concomitant]
     Route: 048
  8. WARFARIN [Concomitant]
     Indication: THROMBOSIS
     Route: 048
  9. INVEGA SUSTENNA [Suspect]
     Indication: SCHIZOPHRENIA
     Route: 030
  10. HUMALOG [Concomitant]
     Indication: DIABETES MELLITUS
     Route: 058
  11. ZOFRAN [Concomitant]
     Indication: MIGRAINE
     Route: 048
  12. TRILIPIX [Concomitant]
     Route: 048
  13. INDERAL LA [Concomitant]
     Indication: BLOOD PRESSURE
     Route: 048
  14. METFORMIN HCL [Concomitant]
     Indication: DIABETES MELLITUS
     Route: 048
  15. GLIPIZIDE [Concomitant]
     Indication: DIABETES MELLITUS
     Route: 048
  16. TEGRETOL-XR [Concomitant]
     Route: 048

REACTIONS (2)
  - MUSCLE SPASMS [None]
  - ARTHRALGIA [None]
